FAERS Safety Report 20536364 (Version 1)
Quarter: 2022Q1

REPORT INFORMATION
  Report Type: Spontaneous
  Country: CA (occurrence: CA)
  Receive Date: 20220302
  Receipt Date: 20220302
  Transmission Date: 20220423
  Serious: Yes (Hospitalization, Disabling)
  Sender: FDA-Public Use
  Company Number: CA-JNJFOC-20210838031

PATIENT
  Sex: Female
  Weight: 81 kg

DRUGS (4)
  1. PEPCID [Suspect]
     Active Substance: FAMOTIDINE
     Indication: Product used for unknown indication
     Route: 048
  2. LOSEC [Suspect]
     Active Substance: OMEPRAZOLE
     Indication: Product used for unknown indication
     Route: 048
  3. RABEPRAZOLE SODIUM [Suspect]
     Active Substance: RABEPRAZOLE SODIUM
     Indication: Product used for unknown indication
     Route: 065
  4. RANITIDINE [Suspect]
     Active Substance: RANITIDINE
     Indication: Product used for unknown indication
     Route: 048

REACTIONS (2)
  - Gastritis [Recovered/Resolved]
  - Gastrooesophageal reflux disease [Recovered/Resolved]
